FAERS Safety Report 5403794-1 (Version None)
Quarter: 2007Q3

REPORT INFORMATION
  Report Type: 
  Country: None (occurrence: None)
  Receive Date: 20070706
  Receipt Date: 20060711
  Transmission Date: 20080115
  Serious: Yes (Death)
  Sender: FDA-Public Use
  Company Number: 455277

PATIENT
  Age: 60 Year
  Sex: Female

DRUGS (1)
  1. CELLCEPT [Suspect]

REACTIONS (1)
  - DEATH [None]
